FAERS Safety Report 7649623-7 (Version None)
Quarter: 2011Q3

REPORT INFORMATION
  Report Type: 
  Country: None (occurrence: None)
  Receive Date: 20110802
  Receipt Date: 20110728
  Transmission Date: 20111222
  Serious: No
  Sender: FDA-Public Use
  Company Number: US-PFIZER INC-2006156123

PATIENT
  Sex: Female
  Weight: 77 kg

DRUGS (12)
  1. LIPITOR [Suspect]
     Indication: BLOOD CHOLESTEROL INCREASED
     Dosage: 20 MG, 1X/DAY
     Dates: start: 20050101
  2. ACTOS [Concomitant]
     Indication: DIABETES MELLITUS
  3. ANASTROZOLE [Concomitant]
     Indication: BREAST CANCER
  4. LEVOXYL [Concomitant]
     Indication: HYPOTHYROIDISM
  5. LIPITOR [Suspect]
     Indication: BLOOD TRIGLYCERIDES INCREASED
     Dosage: 20 MG, 1X/DAY
     Route: 048
     Dates: start: 20060101
  6. UROQID-ACID [Concomitant]
     Indication: BLADDER DISORDER
  7. FLUOXETINE [Concomitant]
     Indication: HYPOTHYROIDISM
  8. DETROL LA [Concomitant]
     Indication: HYPERTONIC BLADDER
  9. DOXEPIN [Concomitant]
     Indication: CHRONIC FATIGUE SYNDROME
  10. CLONAZEPAM [Concomitant]
     Indication: CHRONIC FATIGUE SYNDROME
  11. PRANDIN [Concomitant]
     Indication: DIABETES MELLITUS
  12. MEGESTROL ACETATE [Concomitant]
     Indication: NEOPLASM MALIGNANT

REACTIONS (4)
  - WEIGHT INCREASED [None]
  - ARTHRITIS [None]
  - CARPAL TUNNEL SYNDROME [None]
  - TENDONITIS [None]
